FAERS Safety Report 21673939 (Version 1)
Quarter: 2022Q4

REPORT INFORMATION
  Report Type: Other
  Country: US (occurrence: US)
  Receive Date: 20221202
  Receipt Date: 20221202
  Transmission Date: 20230112
  Serious: No
  Sender: FDA-Public Use
  Company Number: US-GBT-017981

PATIENT
  Age: 63 Year
  Sex: Female

DRUGS (3)
  1. OXBRYTA [Suspect]
     Active Substance: VOXELOTOR
     Indication: Sickle cell disease
  2. CLARITIN [Concomitant]
     Active Substance: LORATADINE
  3. EPOGEN [Concomitant]
     Active Substance: ERYTHROPOIETIN

REACTIONS (3)
  - Sickle cell anaemia with crisis [Unknown]
  - Abdominal pain [Recovered/Resolved]
  - Product dose omission issue [Unknown]

NARRATIVE: CASE EVENT DATE: 20221001
